FAERS Safety Report 6328556-2 (Version None)
Quarter: 2009Q3

REPORT INFORMATION
  Report Type: 
  Country: None (occurrence: None)
  Receive Date: 20090824
  Receipt Date: 20090824
  Transmission Date: 20100115
  Serious: Yes (Other)
  Sender: FDA-Public Use
  Company Number: None

PATIENT
  Sex: Female
  Weight: 58.9676 kg

DRUGS (1)
  1. ACTONEL [Suspect]
     Indication: BONE DISORDER
     Dosage: 1 A WEEK WEEKLY
     Dates: start: 20030101, end: 20050101

REACTIONS (4)
  - DYSPEPSIA [None]
  - DYSPHAGIA [None]
  - FACIAL PAIN [None]
  - PAIN IN JAW [None]
